FAERS Safety Report 7981452-7 (Version None)
Quarter: 2011Q4

REPORT INFORMATION
  Report Type: 
  Country: None (occurrence: None)
  Receive Date: 20111215
  Receipt Date: 20111205
  Transmission Date: 20120403
  Serious: Yes (Hospitalization)
  Sender: FDA-Public Use
  Company Number: US-GENZYME-FABR-1002272

PATIENT
  Sex: Male
  Weight: 106.2 kg

DRUGS (11)
  1. CALCIUM CARBONATE [Concomitant]
     Indication: OSTEOARTHRITIS
     Dosage: 600 MG, QD
     Route: 065
  2. MULTI-VITAMIN [Concomitant]
     Indication: PRODUCT USED FOR UNKNOWN INDICATION
     Dosage: 1 OTHER, QD
     Route: 065
  3. FABRAZYME [Suspect]
     Indication: FABRY'S DISEASE
     Dosage: 1 MG/KG, Q2W
     Route: 042
     Dates: start: 20090415
  4. AVAPRO [Concomitant]
     Indication: HYPERTENSION
     Dosage: 75 MG, QD
     Route: 065
     Dates: start: 20090601
  5. CYANOCOBALAMIN [Concomitant]
     Indication: ANAEMIA
     Dosage: 1 OTHER, QD
     Route: 048
     Dates: start: 20081201
  6. BENADRYL [Concomitant]
     Indication: PREMEDICATION
     Dosage: 75 MG, Q2W
     Route: 065
     Dates: start: 20090825
  7. TYLENOL W/ CODEINE [Concomitant]
     Indication: PAIN
     Dosage: 650 MG, PRN
     Route: 048
     Dates: start: 20090526
  8. ASPIRIN [Concomitant]
     Indication: PRODUCT USED FOR UNKNOWN INDICATION
     Dosage: 81 MG, QD
     Route: 065
     Dates: start: 20091215
  9. PREDNISONE [Concomitant]
     Indication: PREMEDICATION
     Dosage: 50 MG, Q2W
     Route: 065
     Dates: start: 20090805
  10. FERROUS SULFATE TAB [Concomitant]
     Indication: ANAEMIA
     Dosage: 325 MG, QD
     Route: 065
  11. LORAZEPAM [Concomitant]
     Indication: ANXIETY
     Dosage: 1 MG, PRN
     Route: 065
     Dates: start: 20090708

REACTIONS (5)
  - HEART RATE INCREASED [None]
  - ATRIOVENTRICULAR BLOCK SECOND DEGREE [None]
  - ASTHENIA [None]
  - ATRIAL FLUTTER [None]
  - DIZZINESS [None]
